FAERS Safety Report 8248149-X (Version None)
Quarter: 2012Q1

REPORT INFORMATION
  Report Type: 
  Country: None (occurrence: None)
  Receive Date: 20120330
  Receipt Date: 20120316
  Transmission Date: 20120608
  Serious: No
  Sender: FDA-Public Use
  Company Number: US-COVIDIEN/TYCO HEALTHCARE/MALLINCKRODT-T201201112

PATIENT
  Sex: Female
  Weight: 66.667 kg

DRUGS (3)
  1. ALL OTHER THERAPEUTIC PRODUCTS [Concomitant]
     Indication: ANXIETY
     Dosage: UNK, QD
  2. ANTIDEPRESSANTS [Concomitant]
     Indication: DEPRESSION
     Dosage: UNK, QD
  3. NALTREXONE HYDROCHLORIDE [Suspect]
     Indication: PROPHYLAXIS
     Dosage: 50 MG, SINGLE
     Route: 048
     Dates: start: 20120308, end: 20120308

REACTIONS (5)
  - MUSCLE SPASMS [None]
  - ABDOMINAL PAIN [None]
  - TINNITUS [None]
  - VOMITING [None]
  - DIARRHOEA [None]
